FAERS Safety Report 8472157-7 (Version None)
Quarter: 2012Q2

REPORT INFORMATION
  Report Type: 
  Country: None (occurrence: None)
  Receive Date: 20120323
  Receipt Date: 20111115
  Transmission Date: 20120825
  Serious: Yes (Hospitalization)
  Sender: FDA-Public Use
  Company Number: 163-21880-11082707

PATIENT
  Age: 83 Year
  Sex: Female

DRUGS (24)
  1. PREDNISONE [Concomitant]
  2. AMLODIPINE [Concomitant]
  3. K-DUR (POTASSIUM CHLORIDE)(UNKNOWN) [Concomitant]
  4. CALMOSEPTINE (OTHER DERMATOLOGICAL PREPARATIONS)(UNKNOWN) [Concomitant]
  5. REVLIMID [Suspect]
     Indication: MULTIPLE MYELOMA
     Dosage: 10 MG, 1 IN 1 D, PO, 2.5 MG, 1` IN 2 D, PO
     Route: 048
     Dates: start: 20101001, end: 20100101
  6. REVLIMID [Suspect]
     Indication: MULTIPLE MYELOMA
     Dosage: 10 MG, 1 IN 1 D, PO, 2.5 MG, 1` IN 2 D, PO
     Route: 048
     Dates: start: 20110801, end: 20110913
  7. :2 [Concomitant]
  8. FOSAMAX (ALENDRONATE SODIUM)(UNKNOWN) [Concomitant]
  9. ARIXTRA (FONDAPARINUX SODIUM)(UNKNOWN) [Concomitant]
  10. SENOKOT (SENNA FRUIT)(UNKNOWN) [Concomitant]
  11. BACTRIM [Concomitant]
  12. TYLENOL (PARACETAMOL)(UNKNOWN) [Concomitant]
  13. IMODIUM (LOPERAMIDE HYDROCHLORIDE)(UNKNOWN) [Concomitant]
  14. PRADAXA (DABIGATRAN ETEXILATE MESILATE)(UNKNOWN) [Concomitant]
  15. DUONEB (COMBIVENT)(UNKNOWN) [Concomitant]
  16. LACTOBACILLUS (LACTOBACILLUS ACIDOPHILUS)(TABLETS) [Concomitant]
  17. IMMUNOGLOBULIN (IMMUNOGLOBULIN)(UNKNOWN) [Concomitant]
  18. NYSTATIN (NYSTATIN)(UNKNOWN) [Concomitant]
  19. COLACE (DOCUSATE SODIUM)(UNKNOWN) [Concomitant]
  20. ATIVAN [Concomitant]
  21. COMBIVENT (COMBIVENT)(UNKNOWN) [Concomitant]
  22. OS-CAL (OS-CAL)(TABLETS) [Concomitant]
  23. METOPROLOL TARTRATE [Concomitant]
  24. ACYCLOVIR (ACICLOVIR)(UNKNOWN) [Concomitant]

REACTIONS (2)
  - PNEUMONIA [None]
  - DISEASE RECURRENCE [None]
